FAERS Safety Report 5091648-2 (Version None)
Quarter: 2006Q3

REPORT INFORMATION
  Report Type: 
  Country: None (occurrence: None)
  Receive Date: 20060825
  Receipt Date: 20060814
  Transmission Date: 20061208
  Serious: Yes (Hospitalization)
  Sender: FDA-Public Use
  Company Number: GXKR2006US04736

PATIENT
  Age: 28 Year
  Sex: Male

DRUGS (2)
  1. THIAMAZOLE (NGX)(THIAMAZOLE) UNKNOWN [Suspect]
     Indication: BASEDOW'S DISEASE
     Dosage: 10 MG, TID;
  2. PROPRANOLOL [Concomitant]

REACTIONS (2)
  - CHOLESTASIS [None]
  - CONDITION AGGRAVATED [None]
